FAERS Safety Report 7729948-7 (Version None)
Quarter: 2011Q3

REPORT INFORMATION
  Report Type: 
  Country: None (occurrence: None)
  Receive Date: 20110906
  Receipt Date: 20110904
  Transmission Date: 20111222
  Serious: Yes (Other)
  Sender: FDA-Public Use
  Company Number: KR-PFIZER INC-2011206223

PATIENT
  Sex: Male

DRUGS (3)
  1. LASIX [Suspect]
     Indication: ASCITES
     Dosage: 1 TABLET, 1X/DAY
     Route: 048
     Dates: start: 20080101
  2. ALDACTONE [Suspect]
     Indication: ASCITES
     Dosage: 25 MG, 4X/DAY
     Route: 048
     Dates: start: 20080101
  3. PROPRANOLOL [Suspect]
     Indication: HYPERTENSION
     Dosage: UNK
     Route: 048
     Dates: start: 19910101

REACTIONS (2)
  - DIABETES MELLITUS [None]
  - MUSCLE SPASMS [None]
